FAERS Safety Report 5603288-4 (Version None)
Quarter: 2008Q1

REPORT INFORMATION
  Report Type: 
  Country: None (occurrence: None)
  Receive Date: 20080122
  Receipt Date: 20080114
  Transmission Date: 20080703
  Serious: Yes (Hospitalization)
  Sender: FDA-Public Use
  Company Number: E2020-02125-SPO-IN

PATIENT
  Age: 60 Year
  Sex: Male

DRUGS (1)
  1. ARICEPT [Suspect]
     Indication: VASCULAR DEMENTIA
     Dosage: ORAL; 300 MG, 30 IN 1 D, ORAL
     Route: 048
     Dates: start: 20080113, end: 20080113

REACTIONS (3)
  - ACCIDENTAL OVERDOSE [None]
  - CHOLINERGIC SYNDROME [None]
  - DEPRESSED LEVEL OF CONSCIOUSNESS [None]
